FAERS Safety Report 16429002 (Version 8)
Quarter: 2020Q4

REPORT INFORMATION
  Report Type: Spontaneous
  Country: CA (occurrence: CA)
  Receive Date: 20190613
  Receipt Date: 20201031
  Transmission Date: 20210113
  Serious: Yes (Other)
  Sender: FDA-Public Use
  Company Number: CA-CELLTRION INC.-2019CA021819

PATIENT

DRUGS (9)
  1. INFLECTRA [Suspect]
     Active Substance: INFLIXIMAB-DYYB
     Dosage: 400 MG, AT 0, 2, 6, AND THE EVERY 8 WEEKS
     Route: 042
     Dates: start: 20200828
  2. INFLECTRA [Suspect]
     Active Substance: INFLIXIMAB-DYYB
     Dosage: 400 MG, AT 0, 2, 6, AND THE EVERY 8 WEEKS
     Route: 042
     Dates: start: 20201023
  3. INFLECTRA [Suspect]
     Active Substance: INFLIXIMAB-DYYB
     Dosage: 400 MG, AT 0, 2, 6, AND THE EVERY 8 WEEKS
     Route: 042
     Dates: start: 20200226
  4. IMURAN [Concomitant]
     Active Substance: AZATHIOPRINE
     Dosage: UNK, 1X/DAY
     Route: 048
  5. INFLECTRA [Suspect]
     Active Substance: INFLIXIMAB-DYYB
     Indication: CROHN^S DISEASE
     Dosage: 400 MG, AT 0, 2, 6, AND THE EVERY 8 WEEKS
     Route: 042
     Dates: start: 20190530
  6. INFLECTRA [Suspect]
     Active Substance: INFLIXIMAB-DYYB
     Dosage: 400 MG, AT 0, 2, 6, AND THE EVERY 8 WEEKS
     Route: 042
     Dates: start: 20191220
  7. CORTIMENT [BUDESONIDE] [Concomitant]
     Active Substance: BUDESONIDE
     Dosage: UNK, 1X/DAY
     Route: 048
  8. PENTASA [Concomitant]
     Active Substance: MESALAMINE
     Dosage: UNK, 1X/DAY
     Route: 048
  9. INFLECTRA [Suspect]
     Active Substance: INFLIXIMAB-DYYB
     Dosage: 400 MG, AT 0, 2, 6, AND THE EVERY 8 WEEKS
     Route: 042
     Dates: start: 20200508

REACTIONS (9)
  - Syncope [Recovered/Resolved]
  - Hyperhidrosis [Recovering/Resolving]
  - Heart rate decreased [Unknown]
  - Blood pressure increased [Unknown]
  - Presyncope [Recovered/Resolved]
  - Inappropriate schedule of product administration [Unknown]
  - Blood pressure abnormal [Recovering/Resolving]
  - Injection site paraesthesia [Recovering/Resolving]
  - Pallor [Recovering/Resolving]

NARRATIVE: CASE EVENT DATE: 20190530
